FAERS Safety Report 8512252-7 (Version None)
Quarter: 2012Q3

REPORT INFORMATION
  Report Type: 
  Country: None (occurrence: None)
  Receive Date: 20120716
  Receipt Date: 20120703
  Transmission Date: 20120928
  Serious: Yes (Hospitalization, Other)
  Sender: FDA-Public Use
  Company Number: DE-ROCHE-1065548

PATIENT
  Sex: Male

DRUGS (11)
  1. METOCLOPRAMIDE [Concomitant]
     Route: 065
  2. MORPHINE SULPHATE DRIP [Concomitant]
     Route: 065
  3. DOXORUBICIN HCL [Suspect]
     Indication: B-CELL LYMPHOMA
     Route: 042
     Dates: start: 20120417, end: 20120417
  4. CYCLOPHOSPHAMIDE [Suspect]
     Indication: B-CELL LYMPHOMA
     Route: 042
     Dates: start: 20120417, end: 20120417
  5. VINCRISTINE [Suspect]
     Indication: B-CELL LYMPHOMA
     Route: 042
     Dates: start: 20120417, end: 20120417
  6. ACYCLOVIR [Concomitant]
     Route: 065
  7. PREDNISOLONE [Suspect]
     Indication: B-CELL LYMPHOMA
     Route: 048
     Dates: start: 20120416, end: 20120421
  8. NEULASTA [Suspect]
     Indication: B-CELL LYMPHOMA
     Route: 058
     Dates: start: 20120420, end: 20120420
  9. DIPYRONE TAB [Concomitant]
     Route: 065
  10. PANTOPRAZOLE [Concomitant]
     Route: 065
  11. MABTHERA [Suspect]
     Indication: B-CELL LYMPHOMA
     Route: 042
     Dates: start: 20120416, end: 20120416

REACTIONS (2)
  - LYMPHOCYTIC INFILTRATION [None]
  - NEUTROPENIA [None]
